FAERS Safety Report 7102749-9 (Version None)
Quarter: 2010Q4

REPORT INFORMATION
  Report Type: 
  Country: None (occurrence: None)
  Receive Date: 20101115
  Receipt Date: 20101104
  Transmission Date: 20110411
  Serious: Yes (Hospitalization, Other)
  Sender: FDA-Public Use
  Company Number: PHHY2010US75829

PATIENT
  Sex: Male

DRUGS (16)
  1. MYFORTIC [Suspect]
     Indication: RENAL TRANSPLANT
     Dosage: 360 MG, BID
  2. MYFORTIC [Suspect]
     Indication: IMMUNOSUPPRESSION
  3. PROGRAF [Suspect]
     Indication: RENAL TRANSPLANT
     Dosage: 1 MG, BID
     Dates: start: 20071022
  4. PREDNISONE [Suspect]
     Indication: RENAL TRANSPLANT
     Dosage: 10 MG UID/ QD
  5. PREDNISONE [Suspect]
     Indication: IMMUNOSUPPRESSION
  6. PROTONIX [Concomitant]
     Dosage: UNK
  7. LOVENOX [Concomitant]
     Dosage: UNK
  8. INSULIN LISPRO [Concomitant]
     Dosage: UNK
  9. LOPRESSOR [Concomitant]
     Dosage: UNK
  10. KLONOPIN [Concomitant]
     Dosage: UNK
  11. RESTORIL [Concomitant]
  12. NOVOLIN 70/30 [Concomitant]
     Dosage: UNK
  13. NEURONTIN [Concomitant]
     Dosage: UNK
  14. CRESTOR [Concomitant]
     Dosage: UNK
  15. COUMADIN [Concomitant]
     Dosage: UNK
  16. NIFEDIPINE [Concomitant]
     Dosage: UNK

REACTIONS (14)
  - ABDOMINAL PAIN [None]
  - ADENOCARCINOMA PANCREAS [None]
  - DEEP VEIN THROMBOSIS [None]
  - EPSTEIN-BARR VIRUS ASSOCIATED LYMPHOPROLIFERATIVE DISORDER [None]
  - ERYTHEMA [None]
  - FEELING HOT [None]
  - FLANK PAIN [None]
  - LYMPHADENOPATHY [None]
  - PAIN IN EXTREMITY [None]
  - PANCREATIC MASS [None]
  - PANCREATIC NECROSIS [None]
  - THROMBOPHLEBITIS [None]
  - TYPE 2 DIABETES MELLITUS [None]
  - WEIGHT DECREASED [None]
